FAERS Safety Report 26059359 (Version 1)
Quarter: 2025Q4

REPORT INFORMATION
  Report Type: Spontaneous
  Country: US (occurrence: None)
  Receive Date: 20251117
  Receipt Date: 20251117
  Transmission Date: 20260117
  Serious: Yes (Hospitalization)
  Sender: FDA-CTU
  Company Number: None

PATIENT
  Sex: Female

DRUGS (1)
  1. TOBI PODHALER [Suspect]
     Active Substance: TOBRAMYCIN
     Indication: Lung transplant
     Dosage: INHALE 4 CAPSULES VIA PODHALER TWICE DAILY FOR ONE MONTH ON, THEN ONE MONTH OFF
     Route: 055
     Dates: start: 20160902

REACTIONS (7)
  - Gastrointestinal surgery [None]
  - Post procedural haemorrhage [None]
  - Haemoglobin decreased [None]
  - Pain [None]
  - Sleep disorder [None]
  - Loss of personal independence in daily activities [None]
  - Social problem [None]
